FAERS Safety Report 24847394 (Version 1)
Quarter: 2025Q1

REPORT INFORMATION
  Report Type: Report from Study
  Country: JP (occurrence: JP)
  Receive Date: 20250116
  Receipt Date: 20250116
  Transmission Date: 20250409
  Serious: Yes (Hospitalization)
  Sender: ABBVIE
  Company Number: JP-ABBVIE-5452505

PATIENT
  Age: 52 Year
  Sex: Male

DRUGS (25)
  1. VYALEV [Suspect]
     Active Substance: FOSCARBIDOPA\FOSLEVODOPA
     Indication: Parkinson^s disease
     Route: 058
     Dates: start: 20230821
  2. VYALEV [Suspect]
     Active Substance: FOSCARBIDOPA\FOSLEVODOPA
     Route: 058
  3. VYALEV [Suspect]
     Active Substance: FOSCARBIDOPA\FOSLEVODOPA
     Route: 058
  4. VYALEV [Suspect]
     Active Substance: FOSCARBIDOPA\FOSLEVODOPA
     Route: 058
  5. VYALEV [Suspect]
     Active Substance: FOSCARBIDOPA\FOSLEVODOPA
     Route: 058
  6. VYALEV [Suspect]
     Active Substance: FOSCARBIDOPA\FOSLEVODOPA
     Route: 058
  7. VYALEV [Suspect]
     Active Substance: FOSCARBIDOPA\FOSLEVODOPA
     Route: 058
  8. VYALEV [Suspect]
     Active Substance: FOSCARBIDOPA\FOSLEVODOPA
     Route: 058
  9. VYALEV [Suspect]
     Active Substance: FOSCARBIDOPA\FOSLEVODOPA
     Route: 058
  10. OPICAPONE [Concomitant]
     Active Substance: OPICAPONE
     Indication: Parkinson^s disease
  11. ZONISAMIDE [Concomitant]
     Active Substance: ZONISAMIDE
     Indication: Parkinson^s disease
  12. ROTIGOTINE [Concomitant]
     Active Substance: ROTIGOTINE
     Indication: Parkinson^s disease
  13. ROTIGOTINE [Concomitant]
     Active Substance: ROTIGOTINE
     Indication: Parkinson^s disease
  14. ROTIGOTINE [Concomitant]
     Active Substance: ROTIGOTINE
     Indication: Parkinson^s disease
  15. ROTIGOTINE [Concomitant]
     Active Substance: ROTIGOTINE
     Indication: Parkinson^s disease
  16. CARBIDOPA\LEVODOPA [Suspect]
     Active Substance: CARBIDOPA\LEVODOPA
     Indication: Parkinson^s disease
     Route: 048
  17. CARBIDOPA\LEVODOPA [Suspect]
     Active Substance: CARBIDOPA\LEVODOPA
     Indication: Parkinson^s disease
     Route: 048
  18. LEVODOPA [Concomitant]
     Active Substance: LEVODOPA
     Indication: Parkinson^s disease
     Dosage: FORM STRENGTH: 50 MG
     Route: 048
  19. LEVODOPA [Concomitant]
     Active Substance: LEVODOPA
     Indication: Parkinson^s disease
     Route: 048
  20. LEVODOPA [Concomitant]
     Active Substance: LEVODOPA
     Indication: Parkinson^s disease
  21. LEVODOPA [Concomitant]
     Active Substance: LEVODOPA
     Indication: Parkinson^s disease
  22. LEVODOPA [Concomitant]
     Active Substance: LEVODOPA
     Indication: Parkinson^s disease
  23. LEVODOPA [Concomitant]
     Active Substance: LEVODOPA
     Indication: Parkinson^s disease
  24. LEVODOPA [Concomitant]
     Active Substance: LEVODOPA
     Indication: Parkinson^s disease
     Route: 048
  25. LEVODOPA [Concomitant]
     Active Substance: LEVODOPA
     Indication: Parkinson^s disease
     Route: 048

REACTIONS (41)
  - Coronavirus infection [Recovering/Resolving]
  - Infusion site induration [Recovered/Resolved]
  - Pyrexia [Unknown]
  - Dyskinesia [Recovered/Resolved]
  - Infusion site haemorrhage [Unknown]
  - Infusion site bruising [Not Recovered/Not Resolved]
  - Infusion site pain [Recovered/Resolved]
  - Infusion site discharge [Unknown]
  - Weight decreased [Unknown]
  - Fat tissue decreased [Unknown]
  - Infusion site mass [Not Recovered/Not Resolved]
  - Infusion site pain [Not Recovered/Not Resolved]
  - Infusion site erythema [Unknown]
  - Wrong technique in device usage process [Unknown]
  - Infusion site swelling [Unknown]
  - Hypoaesthesia [Unknown]
  - Infusion site warmth [Unknown]
  - Dermatitis contact [Unknown]
  - Infusion site infection [Unknown]
  - Infusion site induration [Not Recovered/Not Resolved]
  - Infusion site haematoma [Unknown]
  - On and off phenomenon [Unknown]
  - Infusion site nodule [Unknown]
  - Incorrect route of product administration [Unknown]
  - Infusion site pain [Recovered/Resolved]
  - Therapeutic product effect delayed [Unknown]
  - Cellulitis [Unknown]
  - Malaise [Recovered/Resolved]
  - Anxiety [Unknown]
  - Mobility decreased [Unknown]
  - Muscle rigidity [Unknown]
  - Dysgeusia [Unknown]
  - Logorrhoea [Unknown]
  - Parosmia [Unknown]
  - Euphoric mood [Unknown]
  - Palpitations [Unknown]
  - Infusion site swelling [Recovered/Resolved]
  - Infusion site pain [Recovered/Resolved]
  - On and off phenomenon [Recovered/Resolved]
  - Dyskinesia [Unknown]
  - Malaise [Unknown]

NARRATIVE: CASE EVENT DATE: 20231118
